FAERS Safety Report 6598157-X (Version None)
Quarter: 2010Q1

REPORT INFORMATION
  Report Type: 
  Country: None (occurrence: None)
  Receive Date: 20100224
  Receipt Date: 20050203
  Transmission Date: 20100710
  Serious: No
  Sender: FDA-Public Use
  Company Number: US-ALLERGAN-200411289

PATIENT
  Age: 16 Year
  Sex: Female

DRUGS (1)
  1. BOTOX [Suspect]
     Indication: HYPERHIDROSIS
     Dosage: INJECTED INTO THE BILATERAL AXILLA
     Route: 030

REACTIONS (1)
  - DRUG INEFFECTIVE [None]
